FAERS Safety Report 8453970-9 (Version None)
Quarter: 2012Q2

REPORT INFORMATION
  Report Type: 
  Country: None (occurrence: None)
  Receive Date: 20120620
  Receipt Date: 20120607
  Transmission Date: 20120825
  Serious: Yes (Hospitalization)
  Sender: FDA-Public Use
  Company Number: US-MYLANLABS-2012S1011886

PATIENT
  Age: 48 Year
  Sex: Male

DRUGS (5)
  1. DOXORUBICIN HCL [Suspect]
     Indication: PRIMARY EFFUSION LYMPHOMA
     Dosage: PART OF EPOCH CHEMOTHERAPY
     Route: 065
  2. CYCLOPHOSPHAMIDE [Suspect]
     Indication: PRIMARY EFFUSION LYMPHOMA
     Dosage: PART OF EPOCH CHEMOTHERAPY
     Route: 065
  3. PREDNISONE TAB [Suspect]
     Indication: PRIMARY EFFUSION LYMPHOMA
     Dosage: PART OF EPOCH CHEMOTHERAPY
     Route: 065
  4. ETOPOSIDE [Suspect]
     Indication: PRIMARY EFFUSION LYMPHOMA
     Dosage: PART OF EPOCH CHEMOTHERAPY
     Route: 065
  5. ONCOVIN [Suspect]
     Indication: PRIMARY EFFUSION LYMPHOMA
     Dosage: PART OF EPOCH CHEMOTHERAPY
     Route: 065

REACTIONS (2)
  - LARGE INTESTINE PERFORATION [None]
  - SMALL INTESTINAL OBSTRUCTION [None]
